FAERS Safety Report 6956976-1 (Version None)
Quarter: 2010Q3

REPORT INFORMATION
  Report Type: 
  Country: None (occurrence: None)
  Receive Date: 20100827
  Receipt Date: 20100827
  Transmission Date: 20110219
  Serious: Yes (Life-Threatening)
  Sender: FDA-Public Use
  Company Number: None

PATIENT
  Age: 57 Year
  Sex: Female
  Weight: 78.2 kg

DRUGS (1)
  1. ALTEPLASE 100MG  GENTECH [Suspect]
     Indication: EMBOLIC STROKE
     Dosage: 7 MG + 54.6MG RECEIVED ONCE IV
     Route: 042
     Dates: start: 20100824, end: 20100824

REACTIONS (2)
  - ANGIOEDEMA [None]
  - INFUSION RELATED REACTION [None]
